FAERS Safety Report 9401597 (Version 3)
Quarter: 2013Q3

REPORT INFORMATION
  Report Type: Spontaneous
  Country: US (occurrence: US)
  Receive Date: 20130716
  Receipt Date: 20130821
  Transmission Date: 20140515
  Serious: Yes (Hospitalization, Other)
  Sender: FDA-Public Use
  Company Number: US-AMGEN-USASP2013048953

PATIENT
  Age: 87 Year
  Sex: Female
  Weight: 55.87 kg

DRUGS (15)
  1. PROLIA [Suspect]
     Indication: OSTEOPOROSIS
     Dosage: 60 MG/ML, Q6MO
     Route: 058
     Dates: start: 20110218
  2. CALCIUM [Concomitant]
  3. VITAMIN D                          /00107901/ [Concomitant]
  4. LUTEIN                             /01638501/ [Concomitant]
     Dosage: 10 MG, QD
  5. OCUVITE                            /01053801/ [Concomitant]
     Dosage: UNK UNK, QD
  6. MULTIVITAMIN                       /00097801/ [Concomitant]
  7. COZAAR [Concomitant]
     Dosage: 50 MG, QD
  8. NORVASC [Concomitant]
  9. SYNTHROID [Concomitant]
  10. VITAMIN C                          /00008001/ [Concomitant]
     Dosage: 500 MG, QD
  11. CITRACAL + D                       /01438101/ [Concomitant]
     Dosage: 315 MG, UNK
     Dates: end: 20130320
  12. LEVOTHYROXINE                      /00068002/ [Concomitant]
     Dosage: 75 MUG, QD
  13. HYDROXYZINE HYDROCHLORIDE [Concomitant]
     Dosage: 10 MG, 1-2 TABLET ONCE A DAY
  14. VITAMIN D3 [Concomitant]
     Dosage: 400 IU, QD
  15. CALCIUM CITRATE [Concomitant]
     Dosage: 1200 MG, QD

REACTIONS (12)
  - Muscular weakness [Recovered/Resolved]
  - Tremor [Unknown]
  - Viral infection [Unknown]
  - Walking aid user [Unknown]
  - Influenza [Unknown]
  - Nausea [Unknown]
  - Hyponatraemia [Unknown]
  - Pyrexia [Unknown]
  - Chills [Unknown]
  - Asthenia [Not Recovered/Not Resolved]
  - Back pain [Unknown]
  - Pain in extremity [Recovered/Resolved]
